FAERS Safety Report 8757773 (Version 2)
Quarter: 2012Q4

REPORT INFORMATION
  Report Type: 
  Country: US (occurrence: US)
  Receive Date: 20120828
  Receipt Date: 20120828
  Transmission Date: 20130627
  Serious: Yes (Other)
  Sender: FDA-Public Use
  Company Number: PHEH2012US015008

PATIENT
  Age: 62 Year
  Sex: Male
  Weight: 120.18 kg

DRUGS (1)
  1. GILENYA [Suspect]
     Indication: MULTIPLE SCLEROSIS
     Dosage: 0.5 mg, QD
     Route: 048
     Dates: start: 20120731

REACTIONS (6)
  - Blood glucose decreased [Not Recovered/Not Resolved]
  - Hunger [Unknown]
  - Fatigue [Unknown]
  - Dizziness [Unknown]
  - Sinus headache [Unknown]
  - Vision blurred [Unknown]
